FAERS Safety Report 8447159-7 (Version None)
Quarter: 2012Q2

REPORT INFORMATION
  Report Type: 
  Country: None (occurrence: None)
  Receive Date: 20120619
  Receipt Date: 20110912
  Transmission Date: 20120825
  Serious: No
  Sender: FDA-Public Use
  Company Number: US-PFIZER INC-K201101063

PATIENT
  Sex: Female
  Weight: 72.562 kg

DRUGS (5)
  1. SYNTHROID [Suspect]
     Dosage: UNK
     Route: 048
     Dates: start: 20110101
  2. SYNTHROID [Suspect]
     Indication: HYPOTHYROIDISM
     Dosage: UNK
     Route: 048
  3. HYZAAR [Concomitant]
     Indication: HYPERTENSION
     Dosage: 100/25 MG, UNK
     Route: 048
  4. ATENOLOL [Concomitant]
     Indication: HYPERTENSION
     Dosage: 25 MG, UNK
     Route: 048
  5. LEVOXYL [Suspect]
     Indication: HYPOTHYROIDISM
     Dosage: 137 UG, 1X/DAY
     Route: 048
     Dates: start: 20110701

REACTIONS (1)
  - ALOPECIA [None]
